FAERS Safety Report 8472197-8 (Version None)
Quarter: 2012Q2

REPORT INFORMATION
  Report Type: 
  Country: None (occurrence: None)
  Receive Date: 20120627
  Receipt Date: 20120622
  Transmission Date: 20120825
  Serious: Yes (Hospitalization, Other)
  Sender: FDA-Public Use
  Company Number: US-MERCK-1108USA01235

PATIENT
  Sex: Female

DRUGS (2)
  1. ACTONEL [Concomitant]
     Indication: OSTEOPOROSIS
     Route: 065
  2. FOSAMAX [Suspect]
     Indication: OSTEOPOROSIS
     Route: 048
     Dates: start: 20040101, end: 20100101

REACTIONS (5)
  - BREAST CANCER [None]
  - ARTHROPATHY [None]
  - TOOTH DISORDER [None]
  - FEMUR FRACTURE [None]
  - BREAST CANCER FEMALE [None]
